FAERS Safety Report 6789726-2 (Version None)
Quarter: 2010Q2

REPORT INFORMATION
  Report Type: 
  Country: None (occurrence: None)
  Receive Date: 20100624
  Receipt Date: 20100618
  Transmission Date: 20101027
  Serious: Yes (Other)
  Sender: FDA-Public Use
  Company Number: US-ELI_LILLY_AND_COMPANY-US201006005258

PATIENT
  Sex: Male

DRUGS (5)
  1. HUMALOG [Suspect]
     Indication: DIABETES MELLITUS
  2. HUMALOG [Suspect]
     Dosage: UNK, UNKNOWN
  3. HUMULIN N [Suspect]
     Indication: DIABETES MELLITUS
  4. HUMULIN N [Suspect]
     Dosage: UNK, UNKNOWN
  5. LANTUS [Concomitant]

REACTIONS (5)
  - CARPAL TUNNEL SYNDROME [None]
  - DUPUYTREN'S CONTRACTURE [None]
  - ROAD TRAFFIC ACCIDENT [None]
  - TENDONITIS [None]
  - TRIGGER FINGER [None]
